FAERS Safety Report 5856090-2 (Version None)
Quarter: 2008Q3

REPORT INFORMATION
  Report Type: 
  Country: None (occurrence: None)
  Receive Date: 20080825
  Receipt Date: 20080819
  Transmission Date: 20090109
  Serious: Yes (Death, Hospitalization, Other)
  Sender: FDA-Public Use
  Company Number: US-CELGENEUS-163-20785-08060633

PATIENT
  Sex: Female

DRUGS (11)
  1. THALOMID [Suspect]
     Indication: MULTIPLE MYELOMA
     Route: 048
     Dates: start: 20080401, end: 20080414
  2. DEXAMETHASONE TAB [Concomitant]
     Indication: MULTIPLE MYELOMA
     Route: 048
     Dates: start: 20080401, end: 20080404
  3. ASPIRIN [Concomitant]
     Indication: CARDIOVASCULAR EVENT PROPHYLAXIS
     Route: 065
     Dates: end: 20080402
  4. CALCIUM WITH VITAMIN D [Concomitant]
     Indication: OSTEOPENIA
     Route: 065
  5. COUMADIN [Concomitant]
     Indication: THROMBOSIS PROPHYLAXIS
     Route: 065
     Dates: start: 20080301, end: 20080413
  6. COUMADIN [Concomitant]
     Route: 065
     Dates: start: 20080301, end: 20080413
  7. ELAVIL [Concomitant]
     Indication: INSOMNIA
     Route: 065
  8. PRILOSEC [Concomitant]
     Indication: GASTROOESOPHAGEAL REFLUX DISEASE
     Route: 065
     Dates: start: 20080210
  9. VYTORIN [Concomitant]
     Indication: HYPERLIPIDAEMIA
     Dosage: 10/20 MG
     Route: 065
     Dates: start: 20070101, end: 20080415
  10. PERCOCET [Concomitant]
     Indication: PAIN
     Dosage: 1-2 TABS
     Route: 048
     Dates: start: 20080210, end: 20080413
  11. VITAMIN E [Concomitant]
     Indication: SUPPLEMENTATION THERAPY
     Route: 065

REACTIONS (4)
  - CHOLESTASIS [None]
  - DEATH [None]
  - HEPATIC FUNCTION ABNORMAL [None]
  - HEPATOTOXICITY [None]
